FAERS Safety Report 7246784-9 (Version None)
Quarter: 2011Q1

REPORT INFORMATION
  Report Type: 
  Country: None (occurrence: None)
  Receive Date: 20110127
  Receipt Date: 20110119
  Transmission Date: 20110831
  Serious: Yes (Death, Life-Threatening, Hospitalization, Other)
  Sender: FDA-Public Use
  Company Number: CH-CELGENEUS-151-21880-11010503

PATIENT
  Sex: Male

DRUGS (2)
  1. KETESSE [Suspect]
     Route: 030
     Dates: start: 20101025, end: 20101027
  2. REVLIMID [Suspect]
     Indication: CACHEXIA
     Route: 048
     Dates: start: 20101007, end: 20101103

REACTIONS (7)
  - RENAL FAILURE [None]
  - INFECTION [None]
  - DISEASE PROGRESSION [None]
  - LEUKOPENIA [None]
  - NEUTROPHIL COUNT DECREASED [None]
  - HAEMOGLOBIN DECREASED [None]
  - ASTHENIA [None]
